FAERS Safety Report 4751059-3 (Version None)
Quarter: 2005Q3

REPORT INFORMATION
  Report Type: 
  Country: None (occurrence: None)
  Receive Date: 20050822
  Receipt Date: 20050809
  Transmission Date: 20060218
  Serious: Yes (Other)
  Sender: FDA-Public Use
  Company Number: HQWYE830510AUG05

PATIENT

DRUGS (2)
  1. RAPAMUNE [Suspect]
     Indication: LIVER TRANSPLANT
     Dosage: DOSE VARIED TO MAINTAIN TARGET THROUGH LEVEL{7 NG/ML
  2. TACROLIMUS (TACROLIMUS) [Concomitant]

REACTIONS (2)
  - LIVER TRANSPLANT REJECTION [None]
  - SURGICAL PROCEDURE REPEATED [None]
